FAERS Safety Report 20064152 (Version 1)
Quarter: 2021Q4

REPORT INFORMATION
  Report Type: Spontaneous
  Country: CN (occurrence: CN)
  Receive Date: 20211112
  Receipt Date: 20211112
  Transmission Date: 20220303
  Serious: Yes (Death, Hospitalization, Other)
  Sender: FDA-Public Use
  Company Number: CN-UCBSA-2021053084

PATIENT
  Sex: Male

DRUGS (17)
  1. LEVETIRACETAM [Suspect]
     Active Substance: LEVETIRACETAM
     Indication: Partial seizures
     Dosage: UNK
  2. LEVETIRACETAM [Suspect]
     Active Substance: LEVETIRACETAM
     Dosage: 38 MILLIGRAM/KILOGRAM, 2X/DAY (BID)
  3. LEVETIRACETAM [Suspect]
     Active Substance: LEVETIRACETAM
     Dosage: 57.5 MILLIGRAM/KILOGRAM, 2X/DAY (BID)
  4. LEVETIRACETAM [Suspect]
     Active Substance: LEVETIRACETAM
     Dosage: 48.3 MILLIGRAM/KILOGRAM, 2X/DAY (BID)
  5. LEVETIRACETAM [Suspect]
     Active Substance: LEVETIRACETAM
     Dosage: 15 MILLIGRAM/KILOGRAM, 2X/DAY (BID)
  6. PHENOBARBITAL SODIUM [Suspect]
     Active Substance: PHENOBARBITAL SODIUM
     Indication: Seizure
     Dosage: 15 MILLIGRAMS
     Route: 042
  7. OXCARBAZEPINE [Suspect]
     Active Substance: OXCARBAZEPINE
     Indication: Seizure
     Dosage: 9.3 MILLIGRAM/KILOGRAM, 2X/DAY (BID)
  8. OXCARBAZEPINE [Suspect]
     Active Substance: OXCARBAZEPINE
     Dosage: 16.9 MILLIGRAM/KILOGRAM, 2X/DAY (BID)
     Route: 048
  9. OXCARBAZEPINE [Suspect]
     Active Substance: OXCARBAZEPINE
     Dosage: 24.1 MILLIGRAM/KILOGRAM, 2X/DAY (BID)
  10. OXCARBAZEPINE [Suspect]
     Active Substance: OXCARBAZEPINE
     Dosage: 30 MILLIGRAM/KILOGRAM, 2X/DAY (BID)
  11. OXCARBAZEPINE [Suspect]
     Active Substance: OXCARBAZEPINE
     Dosage: 24 MILLIGRAM/KILOGRAM, 2X/DAY (BID)
  12. OXCARBAZEPINE [Suspect]
     Active Substance: OXCARBAZEPINE
     Dosage: 30 MILLIGRAM/KILOGRAM, 2X/DAY (BID)
  13. TOPIRAMATE [Suspect]
     Active Substance: TOPIRAMATE
     Indication: Seizure
     Dosage: 1.6 MILLIGRAM/KILOGRAM, 2X/DAY (BID)
  14. TOPIRAMATE [Suspect]
     Active Substance: TOPIRAMATE
     Dosage: 2.8 MILLIGRAM/KILOGRAM, 2X/DAY (BID)
  15. MIDAZOLAM [Concomitant]
     Active Substance: MIDAZOLAM
     Indication: Seizure
     Dosage: 2 MICRO GRAM /KG
     Route: 041
  16. MIDAZOLAM [Concomitant]
     Active Substance: MIDAZOLAM
     Dosage: UNK
  17. VITAMIN B6 [Concomitant]
     Active Substance: PYRIDOXINE HYDROCHLORIDE
     Indication: Seizure
     Dosage: UNK

REACTIONS (4)
  - Death [Fatal]
  - Seizure [Unknown]
  - Thrombocytopenia [Recovered/Resolved]
  - Multiple-drug resistance [Unknown]
